FAERS Safety Report 6235519-4 (Version None)
Quarter: 2009Q2

REPORT INFORMATION
  Report Type: 
  Country: None (occurrence: None)
  Receive Date: 20090618
  Receipt Date: 20080725
  Transmission Date: 20091009
  Serious: No
  Sender: FDA-Public Use
  Company Number: US-ASTRAZENECA-2008UW15447

PATIENT
  Age: 42 Year
  Sex: Female
  Weight: 74.4 kg

DRUGS (3)
  1. RHINOCORT [Suspect]
     Indication: SINUSITIS
     Dosage: 32 MCG 2 SPRAYS IN EACH NOSTRIL ONCE A DAY
     Route: 045
     Dates: start: 20080724
  2. ADVAIR HFA [Concomitant]
  3. MEDROL [Concomitant]

REACTIONS (1)
  - DYSGEUSIA [None]
